FAERS Safety Report 8240338 (Version 7)
Quarter: 2012Q4

REPORT INFORMATION
  Report Type: 
  Country: US (occurrence: US)
  Receive Date: 20111110
  Receipt Date: 20121129
  Transmission Date: 20130627
  Serious: Yes (Hospitalization, Other)
  Sender: FDA-Public Use
  Company Number: US-ASTRAZENECA-2011SE66807

PATIENT
  Age: 53 Year
  Sex: Male

DRUGS (9)
  1. NEXIUM [Suspect]
     Route: 048
  2. NEXIUM [Interacting]
     Dosage: TWO TIMES A DAY
     Route: 048
  3. PLAVIX [Interacting]
     Route: 065
  4. PROTONIX [Concomitant]
  5. DEPAKOTE [Concomitant]
  6. ST JOE ASPIRIN [Concomitant]
  7. AMLODIPINE [Concomitant]
     Indication: BLOOD PRESSURE ABNORMAL
  8. PRAVASTATIN [Concomitant]
     Indication: BLOOD CHOLESTEROL ABNORMAL
  9. NITROGLYCERIN [Concomitant]
     Dosage: AS NEEDED

REACTIONS (25)
  - Drug interaction [Unknown]
  - Epilepsy [Unknown]
  - Large intestinal haemorrhage [Unknown]
  - Obstruction [Unknown]
  - Gastrointestinal haemorrhage [Unknown]
  - Large intestine polyp [Unknown]
  - Melaena [Unknown]
  - Haemoglobin decreased [Unknown]
  - Anaemia [Unknown]
  - Hiatus hernia [Unknown]
  - Barrett^s oesophagus [Unknown]
  - Convulsion [Unknown]
  - Coronary artery disease [Unknown]
  - Hyperlipidaemia [Unknown]
  - Gastrooesophageal reflux disease [Unknown]
  - Diverticulum intestinal [Unknown]
  - Oesophageal stenosis [Unknown]
  - Pulmonary fibrosis [Unknown]
  - Aspiration [Unknown]
  - Productive cough [Unknown]
  - Hypertension [Unknown]
  - Back pain [Unknown]
  - Diarrhoea [Unknown]
  - Off label use [Unknown]
  - Circumstance or information capable of leading to medication error [Unknown]
